FAERS Safety Report 15320152 (Version 2)
Quarter: 2018Q3

REPORT INFORMATION
  Report Type: Spontaneous
  Country: US (occurrence: US)
  Receive Date: 20180827
  Receipt Date: 20180830
  Transmission Date: 20181010
  Serious: No
  Sender: FDA-Public Use
  Company Number: US-PFIZER INC-2018343020

PATIENT
  Age: 62 Year
  Sex: Female

DRUGS (1)
  1. BOSULIF [Suspect]
     Active Substance: BOSUTINIB MONOHYDRATE
     Indication: CHRONIC MYELOID LEUKAEMIA
     Dosage: 400 MG, DAILY
     Dates: start: 20180818

REACTIONS (8)
  - Feeling abnormal [Unknown]
  - Asthenia [Unknown]
  - Decreased appetite [Unknown]
  - Somnolence [Unknown]
  - Dizziness [Unknown]
  - Head discomfort [Unknown]
  - Headache [Unknown]
  - Nausea [Unknown]
